FAERS Safety Report 7067084-6 (Version None)
Quarter: 2010Q4

REPORT INFORMATION
  Report Type: 
  Country: None (occurrence: None)
  Receive Date: 20101028
  Receipt Date: 20101018
  Transmission Date: 20110411
  Serious: No
  Sender: FDA-Public Use
  Company Number: US-BIOGENIDEC-2010BI036802

PATIENT
  Age: 51 Year
  Sex: Male

DRUGS (2)
  1. TYSABRI [Suspect]
     Indication: MULTIPLE SCLEROSIS
     Route: 042
     Dates: start: 20080808, end: 20081007
  2. TYSABRI [Suspect]
     Route: 042
     Dates: start: 20090721, end: 20100527

REACTIONS (2)
  - DRUG INEFFECTIVE [None]
  - MULTIPLE SCLEROSIS RELAPSE [None]
